FAERS Safety Report 14587259 (Version 1)
Quarter: 2018Q1

REPORT INFORMATION
  Report Type: Spontaneous
  Country: US (occurrence: US)
  Receive Date: 20180228
  Receipt Date: 20180228
  Transmission Date: 20180509
  Serious: No
  Sender: FDA-Public Use
  Company Number: None

PATIENT

DRUGS (2)
  1. METHOTREXATE. [Suspect]
     Active Substance: METHOTREXATE
  2. KINERET [Suspect]
     Active Substance: ANAKINRA

REACTIONS (3)
  - Pain [None]
  - Hepatic enzyme increased [None]
  - Transaminases increased [None]
